FAERS Safety Report 13122614 (Version 1)
Quarter: 2017Q1

REPORT INFORMATION
  Report Type: Spontaneous
  Country: US (occurrence: US)
  Receive Date: 20170117
  Receipt Date: 20170117
  Transmission Date: 20170428
  Serious: No
  Sender: FDA-Public Use
  Company Number: US-ALLERGAN-1625340US

PATIENT
  Age: 52 Year
  Sex: Female

DRUGS (3)
  1. ACZONE [Suspect]
     Active Substance: DAPSONE
     Indication: ACNE
     Dosage: UNK, QD
     Route: 061
     Dates: start: 201510
  2. RETIN-A [Concomitant]
     Active Substance: TRETINOIN
     Indication: ACNE
     Dosage: UNK UNK, PRN
     Route: 061
  3. ACZONE [Suspect]
     Active Substance: DAPSONE
     Dosage: UNK, UNKNOWN
     Route: 061
     Dates: start: 201602

REACTIONS (4)
  - Burning sensation [Unknown]
  - Burning sensation [Recovering/Resolving]
  - Eye swelling [Not Recovered/Not Resolved]
  - Erythema [Not Recovered/Not Resolved]

NARRATIVE: CASE EVENT DATE: 2015
